FAERS Safety Report 10881364 (Version 2)
Quarter: 2015Q1

REPORT INFORMATION
  Report Type: Spontaneous
  Country: IE (occurrence: IE)
  Receive Date: 20150303
  Receipt Date: 20150311
  Transmission Date: 20150721
  Serious: Yes (Other)
  Sender: FDA-Public Use
  Company Number: PHFR2015IE001749

PATIENT
  Age: 42 Year
  Sex: Female

DRUGS (1)
  1. CLOZARIL [Suspect]
     Active Substance: CLOZAPINE
     Indication: SCHIZOPHRENIA
     Dosage: UNK
     Route: 048
     Dates: start: 20150122

REACTIONS (1)
  - Differential white blood cell count abnormal [Unknown]

NARRATIVE: CASE EVENT DATE: 20150224
